FAERS Safety Report 19857109 (Version 1)
Quarter: 2021Q3

REPORT INFORMATION
  Report Type: Report from Study
  Country: CN (occurrence: CN)
  Receive Date: 20210920
  Receipt Date: 20210920
  Transmission Date: 20211014
  Serious: Yes (Other)
  Sender: FDA-Public Use
  Company Number: NVSC2021CN211394

PATIENT
  Sex: Female
  Weight: 58 kg

DRUGS (2)
  1. ZYKADIA [Suspect]
     Active Substance: CERITINIB
     Indication: NON-SMALL CELL LUNG CANCER
     Dosage: 450 MG (MG/DAY)
     Route: 048
     Dates: start: 20200619
  2. PANTOPRAZOLE [Concomitant]
     Active Substance: PANTOPRAZOLE
     Indication: ABDOMINAL DISCOMFORT
     Dosage: UNK (1 PILL BEFORE MEAL)
     Route: 065

REACTIONS (6)
  - Nausea [Unknown]
  - Metastases to bone [Not Recovered/Not Resolved]
  - Transaminases increased [Unknown]
  - Vomiting [Unknown]
  - Back pain [Not Recovered/Not Resolved]
  - Mental disorder [Unknown]
